FAERS Safety Report 5990318-3 (Version None)
Quarter: 2008Q4

REPORT INFORMATION
  Report Type: 
  Country: None (occurrence: None)
  Receive Date: 20081211
  Receipt Date: 20081201
  Transmission Date: 20090506
  Serious: Yes (Hospitalization, Disabling)
  Sender: FDA-Public Use
  Company Number: GB-ASTRAZENECA-2008GB02258

PATIENT
  Sex: Male

DRUGS (2)
  1. CRESTOR [Suspect]
     Route: 048
  2. DIPHENE [Concomitant]

REACTIONS (5)
  - ABASIA [None]
  - GENERAL PHYSICAL CONDITION ABNORMAL [None]
  - MALAISE [None]
  - MUSCULOSKELETAL PAIN [None]
  - RASH [None]
